FAERS Safety Report 4481446-2 (Version None)
Quarter: 2004Q3

REPORT INFORMATION
  Report Type: 
  Country: None (occurrence: None)
  Receive Date: 20040923
  Receipt Date: 20040806
  Transmission Date: 20050211
  Serious: No
  Sender: FDA-Public Use
  Company Number: USA040568684

PATIENT
  Age: 75 Year
  Sex: Female
  Weight: 54 kg

DRUGS (8)
  1. FORTEO [Suspect]
     Indication: OSTEOPOROSIS
     Dosage: 20 UG DAY
     Dates: start: 20040521
  2. CALTRATE (CALCIUM CARBONATE) [Concomitant]
  3. FOSAMAX [Concomitant]
  4. GLUCOSAMINE CHONDROITIN [Concomitant]
  5. LISINOPRIL [Concomitant]
  6. MULTI-VITAMIN [Concomitant]
  7. PREMARIN [Concomitant]
  8. ... [Concomitant]

REACTIONS (3)
  - COUGH [None]
  - FATIGUE [None]
  - HEADACHE [None]
